FAERS Safety Report 19404917 (Version 1)
Quarter: 2021Q2

REPORT INFORMATION
  Report Type: Spontaneous
  Country: NL (occurrence: NL)
  Receive Date: 20210611
  Receipt Date: 20210611
  Transmission Date: 20210717
  Serious: Yes (Hospitalization)
  Sender: FDA-Public Use
  Company Number: NVSC2021NL129763

PATIENT
  Age: 71 Year
  Sex: Male

DRUGS (1)
  1. PARACETAMOL [Suspect]
     Active Substance: ACETAMINOPHEN
     Indication: PRODUCT USED FOR UNKNOWN INDICATION
     Dosage: 1000 MG Q6H (4 X PER DAG 2 STUKS)
     Route: 065
     Dates: start: 2019, end: 20210521

REACTIONS (1)
  - Acidosis [Recovering/Resolving]

NARRATIVE: CASE EVENT DATE: 20210520
